FAERS Safety Report 5404334-3 (Version None)
Quarter: 2007Q3

REPORT INFORMATION
  Report Type: 
  Country: None (occurrence: None)
  Receive Date: 20070802
  Receipt Date: 20070702
  Transmission Date: 20080115
  Serious: Yes (Hospitalization, Other)
  Sender: FDA-Public Use
  Company Number: US-PFIZER INC-2006123209

PATIENT
  Sex: Female
  Weight: 59 kg

DRUGS (4)
  1. BEXTRA [Suspect]
     Indication: OSTEOARTHRITIS
     Route: 048
  2. BEXTRA [Suspect]
     Indication: ARTHRALGIA
  3. LANOXIN [Concomitant]
  4. NORVASC [Concomitant]

REACTIONS (1)
  - ACUTE MYOCARDIAL INFARCTION [None]
